FAERS Safety Report 5149726-5 (Version None)
Quarter: 2006Q4

REPORT INFORMATION
  Report Type: 
  Country: None (occurrence: None)
  Receive Date: 20061113
  Receipt Date: 20061017
  Transmission Date: 20070319
  Serious: Yes (Death)
  Sender: FDA-Public Use
  Company Number: 2006AP04935

PATIENT
  Age: 26510 Day
  Sex: Male
  Weight: 55.4 kg

DRUGS (14)
  1. TENORMIN [Suspect]
     Indication: HYPERTENSION
     Route: 048
     Dates: start: 20050112, end: 20050405
  2. TENORMIN [Suspect]
     Route: 048
     Dates: start: 20050406
  3. CONIEL [Concomitant]
     Indication: HYPERTENSION
     Route: 048
     Dates: start: 20041124, end: 20050208
  4. CONIEL [Concomitant]
     Route: 048
     Dates: start: 20050209
  5. SELBEX [Concomitant]
     Indication: GASTRITIS
     Route: 048
  6. CEROCRAL [Concomitant]
     Indication: CEREBRAL INFARCTION
     Route: 048
  7. DEPAS [Concomitant]
     Indication: PSYCHOSOMATIC DISEASE
     Route: 048
  8. HEMOLINGUAL [Concomitant]
     Indication: HAEMORRHOIDS
     Route: 048
  9. KAMAG G [Concomitant]
     Indication: CONSTIPATION
     Route: 048
  10. PURSENNID [Concomitant]
     Indication: CONSTIPATION
     Route: 048
  11. NITOROL R [Concomitant]
     Indication: ANGINA PECTORIS
     Route: 048
  12. NERIPROCT [Concomitant]
     Route: 054
  13. LASIX [Concomitant]
     Indication: PLEURAL EFFUSION
     Route: 048
     Dates: start: 20060925
  14. ADALAT [Concomitant]

REACTIONS (4)
  - MYOCARDIAL INFARCTION [None]
  - OEDEMA [None]
  - PLEURAL EFFUSION [None]
  - SUDDEN DEATH [None]
